FAERS Safety Report 4917886-4 (Version None)
Quarter: 2006Q1

REPORT INFORMATION
  Report Type: 
  Country: None (occurrence: None)
  Receive Date: 20060215
  Receipt Date: 20060203
  Transmission Date: 20060701
  Serious: Yes (Hospitalization)
  Sender: FDA-Public Use
  Company Number: 2006018150

PATIENT
  Age: 54 Year
  Sex: Male
  Weight: 50.9 kg

DRUGS (12)
  1. AMLODIPINE [Suspect]
     Indication: HYPERTENSION
     Dosage: 5 MG (5 MG, ONCE DAILY), ORAL
     Route: 048
     Dates: start: 20050401, end: 20050414
  2. KINEDAK (EPALRESTAT) [Suspect]
     Indication: DIABETES MELLITUS NON-INSULIN-DEPENDENT
     Dosage: 150 MG (50 MG, THREE TIMES DAILY), ORAL
     Route: 048
     Dates: start: 20011201, end: 20051114
  3. MUCOSTA (REBAMIPIDE) [Suspect]
     Indication: GASTRITIS
     Dosage: 300 MG (100 MG, THREE TIMES DAILY), ORAL
     Route: 048
     Dates: start: 20031201, end: 20051114
  4. GLYBURIDE [Suspect]
     Indication: ILL-DEFINED DISORDER
     Dosage: ORAL
     Route: 048
  5. METHYCOBAL (MECOBALAMIN) [Concomitant]
  6. ASPIRIN [Concomitant]
  7. OPALMON (LIMAPROST) [Concomitant]
  8. EPADEL (ETHYL ICOSAPENTATE) [Concomitant]
  9. LAFUTIDINE (LAFUTIDINE) [Concomitant]
  10. BLOPRESS (CANDESARTAN CILEXETIL) [Concomitant]
  11. MEXITIL [Concomitant]
  12. GLICLAZIDE (GLICLAZIDE) [Concomitant]

REACTIONS (2)
  - HEPATIC FUNCTION ABNORMAL [None]
  - LYMPHOCYTE STIMULATION TEST POSITIVE [None]
